FAERS Safety Report 14610955 (Version 1)
Quarter: 2018Q1

REPORT INFORMATION
  Report Type: Spontaneous
  Country: US (occurrence: US)
  Receive Date: 20180308
  Receipt Date: 20180308
  Transmission Date: 20180509
  Serious: No
  Sender: FDA-Public Use
  Company Number: US-JNJFOC-20180100628

PATIENT
  Age: 40 Year
  Sex: Female
  Weight: 86.18 kg

DRUGS (3)
  1. CEFDINIR. [Concomitant]
     Active Substance: CEFDINIR
     Indication: OTITIS MEDIA ACUTE
     Route: 065
     Dates: start: 20171230, end: 20180113
  2. SUDAFED 12 HOUR [Suspect]
     Active Substance: PSEUDOEPHEDRINE HYDROCHLORIDE
     Indication: SINUS CONGESTION
     Dosage: 2 CAPLETS EVERY 8 HOURS
     Route: 048
     Dates: start: 20171223, end: 20171228
  3. SUDAFED 12 HOUR [Suspect]
     Active Substance: PSEUDOEPHEDRINE HYDROCHLORIDE
     Indication: SINUS CONGESTION
     Dosage: 1 CAPLET ONCE
     Route: 048
     Dates: start: 20171229

REACTIONS (1)
  - Incorrect dose administered [Unknown]

NARRATIVE: CASE EVENT DATE: 20171223
